FAERS Safety Report 9815450 (Version 1)
Quarter: 2014Q1

REPORT INFORMATION
  Report Type: Spontaneous
  Country: US (occurrence: US)
  Receive Date: 20140114
  Receipt Date: 20140114
  Transmission Date: 20141002
  Serious: No
  Sender: FDA-Public Use
  Company Number: US-PFIZER INC-2014008366

PATIENT
  Age: 48 Year
  Sex: Male
  Weight: 81.63 kg

DRUGS (5)
  1. LYRICA [Suspect]
     Indication: CERVICAL VERTEBRAL FRACTURE
     Dosage: UNK
     Dates: start: 2012
  2. LYRICA [Suspect]
     Indication: QUADRIPLEGIA
     Dosage: UNK
     Dates: end: 20140108
  3. LYRICA [Suspect]
     Indication: NEURALGIA
  4. TRAMADOL [Concomitant]
     Dosage: UNK
  5. BACLOFEN [Concomitant]
     Dosage: UNK

REACTIONS (1)
  - Pain [Unknown]
